FAERS Safety Report 4631498-1 (Version None)
Quarter: 2005Q2

REPORT INFORMATION
  Report Type: 
  Country: None (occurrence: None)
  Receive Date: 20050407
  Receipt Date: 20050324
  Transmission Date: 20051028
  Serious: Yes (Hospitalization)
  Sender: FDA-Public Use
  Company Number: 2005AP01746

PATIENT
  Age: 53 Year
  Sex: Male

DRUGS (8)
  1. IRESSA [Suspect]
     Indication: OROPHARYNGEAL CANCER STAGE UNSPECIFIED
     Dosage: 500 MG DAILY PO
     Route: 048
     Dates: start: 20050128, end: 20050226
  2. CISPLATIN [Suspect]
     Indication: OROPHARYNGEAL CANCER STAGE UNSPECIFIED
     Dosage: 170 MG/M2 IV
     Route: 042
     Dates: start: 20050208, end: 20050208
  3. CISPLATIN [Suspect]
     Indication: OROPHARYNGEAL CANCER STAGE UNSPECIFIED
     Dosage: 170 MG/M2 IV
     Route: 042
     Dates: start: 20050303, end: 20050303
  4. RADIOTHERAPY [Suspect]
     Indication: OROPHARYNGEAL CANCER STAGE UNSPECIFIED
     Dosage: 1.8 GY PER DAY
     Dates: start: 20050208, end: 20050212
  5. RADIOTHERAPY [Suspect]
     Indication: OROPHARYNGEAL CANCER STAGE UNSPECIFIED
     Dosage: 1.8 GY PER DAY
     Dates: start: 20050214, end: 20050219
  6. RADIOTHERAPY [Suspect]
     Indication: OROPHARYNGEAL CANCER STAGE UNSPECIFIED
     Dosage: 1.8 GY PER DAY
     Dates: start: 20050221, end: 20050225
  7. RADIOTHERAPY [Suspect]
     Indication: OROPHARYNGEAL CANCER STAGE UNSPECIFIED
     Dosage: 1.8 GY PER DAY
     Dates: start: 20050228, end: 20050304
  8. RADIOTHERAPY [Suspect]
     Indication: OROPHARYNGEAL CANCER STAGE UNSPECIFIED
     Dosage: 1.8 GY PER DAY
     Dates: start: 20050307, end: 20050312

REACTIONS (9)
  - BLOOD CHLORIDE DECREASED [None]
  - BLOOD POTASSIUM DECREASED [None]
  - BLOOD SODIUM DECREASED [None]
  - CHILLS [None]
  - COUGH [None]
  - DIARRHOEA [None]
  - GRAND MAL CONVULSION [None]
  - PYREXIA [None]
  - RASH [None]
